FAERS Safety Report 5202135-2 (Version None)
Quarter: 2006Q4

REPORT INFORMATION
  Report Type: 
  Country: None (occurrence: None)
  Receive Date: 20061221
  Receipt Date: 20061214
  Transmission Date: 20070319
  Serious: Yes (Death, Hospitalization)
  Sender: FDA-Public Use
  Company Number: WSDF_00597

PATIENT
  Age: 80 Year
  Sex: Female

DRUGS (1)
  1. WINRHO SDF [Suspect]
     Indication: IDIOPATHIC THROMBOCYTOPENIC PURPURA

REACTIONS (7)
  - CEREBRAL HAEMORRHAGE [None]
  - CHEST PAIN [None]
  - CONFUSIONAL STATE [None]
  - ENCEPHALOPATHY [None]
  - HAEMOLYTIC ANAEMIA [None]
  - LETHARGY [None]
  - SOMNOLENCE [None]
